FAERS Safety Report 21605846 (Version 2)
Quarter: 2023Q1

REPORT INFORMATION
  Report Type: Report from Study
  Country: US (occurrence: US)
  Receive Date: 20221116
  Receipt Date: 20230118
  Transmission Date: 20230418
  Serious: Yes (Hospitalization)
  Sender: FDA-Public Use
  Company Number: US-ABBVIE-4202078

PATIENT
  Sex: Male

DRUGS (1)
  1. VENCLEXTA [Suspect]
     Active Substance: VENETOCLAX
     Indication: Neoplasm malignant
     Dosage: 3 TABLETS BY MOUTH DAILY SWALLOW WHOLE WITH FOOD AVOID GRAPEFRUIT PRODUCTS, STAR FRUIT, SEVILLE O...
     Route: 048

REACTIONS (1)
  - Fall [Unknown]
